FAERS Safety Report 10169029 (Version 3)
Quarter: 2014Q2

REPORT INFORMATION
  Report Type: Spontaneous
  Country: FR (occurrence: FR)
  Receive Date: 20140513
  Receipt Date: 20140627
  Transmission Date: 20141212
  Serious: Yes (Other)
  Sender: FDA-Public Use
  Company Number: FR-BRISTOL-MYERS SQUIBB COMPANY-20733176

PATIENT
  Age: 43 Year
  Sex: Female
  Weight: 78 kg

DRUGS (4)
  1. METFORMIN HCL [Suspect]
     Indication: TYPE 2 DIABETES MELLITUS
     Dosage: THREE DOSAGE FORMS
     Dates: start: 20110415, end: 20110520
  2. DIAMICRON [Concomitant]
     Dosage: 1DF= 60 UNITS NOS.
  3. LANTUS [Concomitant]
  4. GLUCOR [Concomitant]

REACTIONS (2)
  - Pancreatitis [Recovered/Resolved]
  - Blood triglycerides increased [Recovered/Resolved]
